FAERS Safety Report 8326486 (Version 2)
Quarter: 2013Q1

REPORT INFORMATION
  Report Type: Spontaneous
  Country: US (occurrence: US)
  Receive Date: 20120109
  Receipt Date: 20130326
  Transmission Date: 20140127
  Serious: Yes (Other)
  Sender: FDA-Public Use
  Company Number: US-BAYER-2012-001220

PATIENT
  Age: 29 Year
  Sex: Female

DRUGS (3)
  1. YAZ [Suspect]
     Dosage: UNK
     Route: 048
     Dates: start: 200902, end: 200909
  2. YASMIN [Suspect]
     Dosage: UNK
     Dates: start: 200902, end: 200909
  3. OCELLA [Suspect]
     Dosage: UNK
     Dates: start: 200902, end: 200909

REACTIONS (4)
  - Cholelithiasis [None]
  - Cholecystitis chronic [None]
  - Injury [None]
  - Pain [None]
